FAERS Safety Report 12160879 (Version 1)
Quarter: 2016Q1

REPORT INFORMATION
  Report Type: Spontaneous
  Country: US (occurrence: US)
  Receive Date: 20160308
  Receipt Date: 20160308
  Transmission Date: 20160526
  Serious: No
  Sender: FDA-Public Use
  Company Number: US-PRESTIUM-2015RN000158

PATIENT
  Age: 65 Year
  Sex: Female
  Weight: 72.56 kg

DRUGS (3)
  1. PREDNISONE. [Concomitant]
     Active Substance: PREDNISONE
     Indication: RHEUMATOID ARTHRITIS
     Dosage: UNK
  2. CLOBETASOL PROPIONATE. [Suspect]
     Active Substance: CLOBETASOL PROPIONATE
     Dosage: SECOND CANISTER, 0.05 %, UNK
     Route: 061
     Dates: start: 20151202
  3. CLOBETASOL PROPIONATE. [Suspect]
     Active Substance: CLOBETASOL PROPIONATE
     Indication: PSORIASIS
     Dosage: FIRST CANISTER, 0.05 %, UNK
     Route: 061
     Dates: start: 201511

REACTIONS (2)
  - Drug ineffective [Not Recovered/Not Resolved]
  - Product physical consistency issue [Not Recovered/Not Resolved]

NARRATIVE: CASE EVENT DATE: 201511
